FAERS Safety Report 9188846 (Version 1)
Quarter: 2013Q1

REPORT INFORMATION
  Report Type: Spontaneous
  Country: CA (occurrence: CA)
  Receive Date: 20130326
  Receipt Date: 20130326
  Transmission Date: 20140127
  Serious: Yes (Other)
  Sender: FDA-Public Use
  Company Number: CA-JNJFOC-20111010850

PATIENT
  Sex: Female

DRUGS (2)
  1. REMICADE [Suspect]
     Indication: CROHN^S DISEASE
     Route: 042
     Dates: start: 201008
  2. REMICADE [Suspect]
     Indication: CROHN^S DISEASE
     Dosage: 2ND INFUSION
     Route: 042

REACTIONS (9)
  - Vomiting [Unknown]
  - Dyspnoea [Unknown]
  - Infusion related reaction [Unknown]
  - Anxiety [Unknown]
  - Chest pain [Unknown]
  - Dizziness [Unknown]
  - Nausea [Unknown]
  - Fatigue [Unknown]
  - Headache [Unknown]
